FAERS Safety Report 7153781-0 (Version None)
Quarter: 2010Q4

REPORT INFORMATION
  Report Type: 
  Country: None (occurrence: None)
  Receive Date: 20101213
  Receipt Date: 20100305
  Transmission Date: 20110411
  Serious: No
  Sender: FDA-Public Use
  Company Number: US-ABBOTT-10P-163-0630877-00

PATIENT
  Sex: Male

DRUGS (1)
  1. MERIDIA [Suspect]
     Indication: OBESITY
     Route: 048

REACTIONS (1)
  - ERECTILE DYSFUNCTION [None]
